FAERS Safety Report 5250468-6 (Version None)
Quarter: 2007Q1

REPORT INFORMATION
  Report Type: 
  Country: None (occurrence: None)
  Receive Date: 20070228
  Receipt Date: 20060419
  Transmission Date: 20070707
  Serious: No
  Sender: FDA-Public Use
  Company Number: US-GLAXOSMITHKLINE-A0602495A

PATIENT
  Age: 43 Year
  Sex: Female

DRUGS (4)
  1. LAMICTAL [Suspect]
     Indication: PARTIAL SEIZURES
     Dosage: 100MG PER DAY
     Route: 048
     Dates: start: 19960101, end: 20050101
  2. LAMICTAL [Suspect]
     Dosage: 100MG FOUR TIMES PER DAY
     Route: 048
     Dates: start: 20050701
  3. CARBATROL [Concomitant]
  4. ZONEGRAN [Concomitant]

REACTIONS (8)
  - ANXIETY [None]
  - DIPLOPIA [None]
  - HEADACHE [None]
  - IMPULSIVE BEHAVIOUR [None]
  - METRORRHAGIA [None]
  - NONSPECIFIC REACTION [None]
  - OVARIAN CYST [None]
  - VISION BLURRED [None]
